FAERS Safety Report 8256458-3 (Version None)
Quarter: 2012Q2

REPORT INFORMATION
  Report Type: 
  Country: None (occurrence: None)
  Receive Date: 20120403
  Receipt Date: 20120330
  Transmission Date: 20120825
  Serious: No
  Sender: FDA-Public Use
  Company Number: US-PFIZER INC-2012081710

PATIENT
  Sex: Female
  Weight: 61.224 kg

DRUGS (1)
  1. IBUPROFEN (ADVIL) [Suspect]
     Indication: HEADACHE
     Dosage: UNK
     Dates: end: 20120329

REACTIONS (3)
  - NAUSEA [None]
  - POOR QUALITY DRUG ADMINISTERED [None]
  - GASTRIC DISORDER [None]
